FAERS Safety Report 4796342-0 (Version None)
Quarter: 2005Q4

REPORT INFORMATION
  Report Type: 
  Country: None (occurrence: None)
  Receive Date: 20051007
  Receipt Date: 20051004
  Transmission Date: 20060501
  Serious: Yes (Life-Threatening)
  Sender: FDA-Public Use
  Company Number: 2005S1000833

PATIENT
  Age: 5 Day
  Sex: Female

DRUGS (8)
  1. INOMAX [Suspect]
     Indication: LUNG DISORDER
     Dosage: 5 PPM, CONT; INH
     Route: 055
     Dates: start: 20050930
  2. INOMAX [Suspect]
     Indication: PROPHYLAXIS
     Dosage: 5 PPM, CONT; INH
     Route: 055
     Dates: start: 20050930
  3. SUFENTANIL CITRATE [Concomitant]
  4. MIDAZOLAM [Concomitant]
  5. KETAMINE [Concomitant]
  6. IBUPROFEN [Concomitant]
  7. MIDAZOLAM [Concomitant]
  8. SUFENTANIL CITRATE [Concomitant]

REACTIONS (11)
  - ANAEMIA [None]
  - ASPIRATION [None]
  - C-REACTIVE PROTEIN INCREASED [None]
  - CHORIOAMNIONITIS [None]
  - HYPERKALAEMIA [None]
  - INFECTION [None]
  - INTRAVENTRICULAR HAEMORRHAGE NEONATAL [None]
  - KLEBSIELLA INFECTION [None]
  - PNEUMOTHORAX [None]
  - RENAL FAILURE [None]
  - SKIN DISCOLOURATION [None]
